FAERS Safety Report 22072816 (Version 4)
Quarter: 2024Q4

REPORT INFORMATION
  Report Type: Report from Study
  Country: US (occurrence: US)
  Receive Date: 20230308
  Receipt Date: 20241108
  Transmission Date: 20250115
  Serious: Yes (Other)
  Sender: AMGEN
  Company Number: US-AMGEN-USASP2023036729

PATIENT
  Age: 64 Year
  Sex: Female

DRUGS (22)
  1. OTEZLA [Suspect]
     Active Substance: APREMILAST
     Indication: Psoriatic arthropathy
     Dosage: 30 MILLIGRAM, BID
     Route: 048
     Dates: end: 202302
  2. OTEZLA [Suspect]
     Active Substance: APREMILAST
     Dosage: 30 MILLIGRAM, QD
     Route: 048
     Dates: start: 202302, end: 202302
  3. OTEZLA [Suspect]
     Active Substance: APREMILAST
     Dosage: 30 MILLIGRAM, BID
     Route: 048
     Dates: start: 202302
  4. OTEZLA [Suspect]
     Active Substance: APREMILAST
     Dosage: 30 MILLIGRAM, BID
     Route: 048
  5. METHOTREXATE [Suspect]
     Active Substance: METHOTREXATE
     Indication: Product used for unknown indication
     Dosage: 25 MG/ML
     Route: 065
  6. RIFABUTIN [Concomitant]
     Active Substance: RIFABUTIN
     Dosage: UNK
     Route: 065
  7. AZITHROMYCIN [Concomitant]
     Active Substance: AZITHROMYCIN
     Dosage: UNK
     Route: 065
  8. ETHAMBUTOL HYDROCHLORIDE [Concomitant]
     Active Substance: ETHAMBUTOL HYDROCHLORIDE
     Dosage: UNK
     Route: 065
  9. AXERT [Concomitant]
     Active Substance: ALMOTRIPTAN MALATE
     Dosage: 12.5 MILLIGRAM
  10. XANAX [Concomitant]
     Active Substance: ALPRAZOLAM
     Dosage: 0.25 MILLIGRAM
  11. ANORO ELLIPTA [Concomitant]
     Active Substance: UMECLIDINIUM BROMIDE\VILANTEROL TRIFENATATE
     Dosage: 62.5-25 MCG/ACTUATION BLISTER WITH DEVICE
  12. ZITHROMAX [Concomitant]
     Active Substance: AZITHROMYCIN DIHYDRATE
     Dosage: 500 MILLIGRAM
  13. COVID-19 vaccine [Concomitant]
     Dosage: UNK
  14. DICLOFENAC SODIUM [Concomitant]
     Active Substance: DICLOFENAC SODIUM
     Dosage: UNK
  15. MYAMBUTOL [Concomitant]
     Active Substance: ETHAMBUTOL HYDROCHLORIDE
     Dosage: 400 MILLIGRAM
  16. FOLVITE [Concomitant]
     Active Substance: FOLIC ACID
     Dosage: 1 MILLIGRAM
  17. ATARAX [Concomitant]
     Active Substance: HYDROXYZINE HYDROCHLORIDE
     Dosage: 25 MILLIGRAM
  18. LEUCOVORIN [Concomitant]
     Active Substance: LEUCOVORIN\LEUCOVORIN CALCIUM
     Dosage: 10 MILLIGRAM
  19. SODIUM CHLORIDE [Concomitant]
     Active Substance: SODIUM CHLORIDE
     Dosage: UNK
  20. PLAQUENIL [Concomitant]
     Active Substance: HYDROXYCHLOROQUINE SULFATE
     Dosage: UNK
  21. SINGULAIR [Concomitant]
     Active Substance: MONTELUKAST SODIUM
     Dosage: 10 MILLIGRAM
  22. FELDENE [Concomitant]
     Active Substance: PIROXICAM
     Dosage: 20 MILLIGRAM

REACTIONS (33)
  - Interstitial lung disease [Unknown]
  - Bronchiectasis [Unknown]
  - Cataract [Unknown]
  - Ocular hypertension [Unknown]
  - Mycobacterium abscessus infection [Unknown]
  - Rheumatoid arthritis [Unknown]
  - Deafness neurosensory [Unknown]
  - Disseminated mycobacterium avium complex infection [Unknown]
  - Pneumonia bacterial [Unknown]
  - Pneumonia [Unknown]
  - Drug ineffective [Unknown]
  - Nausea [Unknown]
  - Blood culture positive [Unknown]
  - Eating disorder [Unknown]
  - COVID-19 [Unknown]
  - Osteoporosis [Unknown]
  - Lymphopenia [Unknown]
  - Vitamin D deficiency [Unknown]
  - Sleep disorder [Unknown]
  - Weight decreased [Unknown]
  - Dry eye [Unknown]
  - Ophthalmic migraine [Unknown]
  - Bursitis [Unknown]
  - Type V hyperlipidaemia [Unknown]
  - Spinal osteoarthritis [Unknown]
  - Foot deformity [Unknown]
  - Myopia [Unknown]
  - Astigmatism [Unknown]
  - Presbyopia [Unknown]
  - Intervertebral disc disorder [Unknown]
  - Foot fracture [Unknown]
  - Paranasal sinus discomfort [Recovered/Resolved]
  - Asthma [Unknown]

NARRATIVE: CASE EVENT DATE: 20230201
